FAERS Safety Report 10663491 (Version 2)
Quarter: 2015Q1

REPORT INFORMATION
  Report Type: Report from Study
  Country: US (occurrence: US)
  Receive Date: 20141219
  Receipt Date: 20150122
  Transmission Date: 20150720
  Serious: Yes (Other)
  Sender: FDA-Public Use
  Company Number: US-ASTRAZENECA-2014SE93026

PATIENT
  Sex: Female
  Weight: 86.2 kg

DRUGS (10)
  1. RAMAPIAL, GENERIC ALTACE [Concomitant]
  2. MULTIVITAMIN [Concomitant]
     Active Substance: VITAMINS
  3. CRESTOR [Suspect]
     Active Substance: ROSUVASTATIN CALCIUM
     Route: 048
  4. METFORMIN [Concomitant]
     Active Substance: METFORMIN HYDROCHLORIDE
     Indication: DIABETES MELLITUS
  5. SERTRALINE, GENERIC ZOLOFT [Concomitant]
  6. METOPROLOL TARTRATE. [Suspect]
     Active Substance: METOPROLOL TARTRATE
     Route: 048
  7. ALPRAZOLAM GENERIC XANAC [Concomitant]
  8. BUPROPRON GENERIC WELBUTRIN [Concomitant]
  9. LEVOTYROXINE SODIUM [Concomitant]
  10. (GLIMEPRIDE) AMARYL [Concomitant]

REACTIONS (2)
  - Skin cancer [Unknown]
  - Drug dose omission [Unknown]
